FAERS Safety Report 4307524-6 (Version None)
Quarter: 2004Q1

REPORT INFORMATION
  Report Type: 
  Country: None (occurrence: None)
  Receive Date: 20040226
  Receipt Date: 20040220
  Transmission Date: 20041129
  Serious: Yes (Other)
  Sender: FDA-Public Use
  Company Number: 2004-02-1262

PATIENT
  Age: 72 Year
  Sex: Female

DRUGS (12)
  1. CLARITIN [Suspect]
     Indication: RHINITIS ALLERGIC
     Dosage: 10 MG QD ORAL
     Route: 048
     Dates: start: 20040212, end: 20040212
  2. THEO-DUR [Concomitant]
  3. METOPROLOL TARTRATE [Concomitant]
  4. PURSENNID [Concomitant]
  5. DIAZEPAM [Concomitant]
  6. MECOBALAMIN [Concomitant]
  7. HYALURONATE SODIUM [Concomitant]
  8. MYTEAR [Concomitant]
  9. PL (SALICYLAMIDE/APAP/CAFFEINE/PROMETHAZINE) [Concomitant]
  10. RESPLEN [Concomitant]
  11. POVIDONE IODINE [Concomitant]
  12. KETOPROFEN [Concomitant]

REACTIONS (1)
  - SUDDEN HEARING LOSS [None]
